FAERS Safety Report 21307489 (Version 1)
Quarter: 2022Q3

REPORT INFORMATION
  Report Type: Spontaneous
  Country: BR (occurrence: BR)
  Receive Date: 20220908
  Receipt Date: 20220908
  Transmission Date: 20221026
  Serious: Yes (Other)
  Sender: FDA-Public Use
  Company Number: BR-CHEPLA-2022007638

PATIENT
  Sex: Male
  Weight: 85 kg

DRUGS (7)
  1. CLONAZEPAM [Suspect]
     Active Substance: CLONAZEPAM
     Indication: Sleep apnoea syndrome
     Dosage: DAILY DOSE: 10 DROP
     Route: 048
     Dates: start: 20220830
  2. CLONAZEPAM [Suspect]
     Active Substance: CLONAZEPAM
     Indication: Sleep apnoea syndrome
     Dosage: DAILY DOSE: 1 DOSAGE FORM
     Route: 048
  3. Chondroitin + Glucosamine [Concomitant]
     Indication: Bone prosthesis insertion
     Dosage: 10 YEARS AGO (2012)??DAILY DOSE: 1 DOSAGE FORM
     Route: 048
     Dates: start: 2012
  4. ESOMEPRAZOLE [Concomitant]
     Active Substance: ESOMEPRAZOLE
     Indication: Gastritis
     Dosage: 15 YEARS AGO (2007)??DAILY DOSE: 1 DOSAGE FORM
     Route: 048
     Dates: start: 2007
  5. Olmesartan+ Hydrochlorothiazide [Concomitant]
     Indication: Blood pressure inadequately controlled
     Dosage: 10 YEARS AGO (2012)??DAILY DOSE: 1 DOSAGE FORM
     Route: 048
     Dates: start: 2012
  6. BIMATOPROST\TIMOLOL [Concomitant]
     Active Substance: BIMATOPROST\TIMOLOL
     Indication: Glaucoma
     Dosage: OPHTHALMIC TOPICAL ?DAILY DOSE: 1 DROP
     Route: 061
  7. SIMBRINZA [Concomitant]
     Active Substance: BRIMONIDINE TARTRATE\BRINZOLAMIDE
     Indication: Blood pressure inadequately controlled
     Dosage: OPHTHALMIC TOPICAL, APPROXIMATELY 6 YEARS AGO?(2016)??DAILY DOSE: 1 DOSAGE FORM
     Route: 061
     Dates: start: 2016

REACTIONS (6)
  - Arrhythmia [Recovered/Resolved]
  - COVID-19 [Recovered/Resolved]
  - Poor quality sleep [Recovered/Resolved]
  - Product use issue [Recovered/Resolved]
  - Product use in unapproved indication [Not Recovered/Not Resolved]
  - Incorrect product administration duration [Not Recovered/Not Resolved]

NARRATIVE: CASE EVENT DATE: 20180101
